FAERS Safety Report 6999567 (Version 5)
Quarter: 2012Q4

REPORT INFORMATION
  Report Type: 
  Country: US (occurrence: US)
  Receive Date: 20050725
  Receipt Date: 20121018
  Transmission Date: 20130627
  Serious: Yes (Disabling, Other)
  Sender: FDA-Public Use
  Company Number: US-PFIZER INC-2005103601

PATIENT
  Age: 52 Year
  Sex: Female
  Weight: 85 kg

DRUGS (12)
  1. PROVERA [Suspect]
     Indication: HORMONE REPLACEMENT THERAPY
     Dosage: 10 mg, UNK
     Route: 048
     Dates: start: 1994, end: 1998
  2. PREMARIN [Suspect]
     Indication: HORMONE REPLACEMENT THERAPY
     Dosage: 1.25 mg, UNK
     Route: 048
     Dates: start: 1994, end: 1996
  3. MEDROXYPROGESTERONE ACETATE [Suspect]
     Indication: HORMONE REPLACEMENT THERAPY
     Dosage: 10 mg, UNK
     Route: 048
     Dates: start: 1998, end: 2001
  4. ESTRADIOL [Suspect]
     Indication: HORMONE REPLACEMENT THERAPY
     Dosage: UNK
  5. MEDROXYPROGESTERONE ACETATE [Suspect]
     Indication: HORMONE REPLACEMENT THERAPY
     Dosage: 10 mg, UNK
     Dates: start: 1998, end: 2001
  6. ESTRACE [Suspect]
     Indication: HORMONE REPLACEMENT THERAPY
     Dosage: 1 mg, UNK
     Dates: start: 1996, end: 1999
  7. CYCRIN [Suspect]
     Indication: HORMONE REPLACEMENT THERAPY
     Dosage: 5 mg, UNK
     Route: 048
     Dates: start: 1996, end: 1999
  8. ESTRADIOL [Suspect]
     Indication: HORMONE REPLACEMENT THERAPY
     Dosage: 1 mg, UNK
     Dates: start: 1999, end: 2000
  9. PAXIL [Concomitant]
     Indication: DEPRESSION
     Dosage: UNK
     Dates: start: 1995
  10. VICODIN [Concomitant]
     Indication: PAIN
     Dosage: UNK
     Dates: start: 2000
  11. FLEXERIL [Concomitant]
     Indication: MUSCLE TIGHTNESS
     Dosage: UNK
     Dates: start: 1995
  12. ALBUTEROL [Concomitant]
     Indication: CHRONIC OBSTRUCTIVE PULMONARY DISEASE
     Dosage: UNK
     Dates: start: 1995

REACTIONS (1)
  - Invasive ductal breast carcinoma [Unknown]
